FAERS Safety Report 7907823-2 (Version None)
Quarter: 2011Q4

REPORT INFORMATION
  Report Type: 
  Country: None (occurrence: None)
  Receive Date: 20111110
  Receipt Date: 20111104
  Transmission Date: 20120403
  Serious: Yes (Other)
  Sender: FDA-Public Use
  Company Number: CA-PFIZER INC-2011270642

PATIENT
  Sex: Female

DRUGS (2)
  1. SYSTANE [Concomitant]
     Indication: DRY EYE
     Dosage: UNK
  2. XALATAN [Suspect]
     Indication: GLAUCOMA
     Dosage: 1 GTT, 1X/DAY IN EACH EYE
     Route: 047
     Dates: start: 20090101

REACTIONS (1)
  - CATARACT [None]
